FAERS Safety Report 10406375 (Version 1)
Quarter: 2014Q3

REPORT INFORMATION
  Report Type: Spontaneous
  Country: US (occurrence: None)
  Receive Date: 20140822
  Receipt Date: 20140822
  Transmission Date: 20150326
  Serious: Yes (Other)
  Sender: FDA-Public Use
  Company Number: None

PATIENT
  Age: 62 Year
  Sex: Male

DRUGS (5)
  1. PREDNISONE. [Concomitant]
     Active Substance: PREDNISONE
  2. XTANDI [Suspect]
     Active Substance: ENZALUTAMIDE
     Indication: PROSTATE CANCER
     Route: 048
     Dates: start: 20140303, end: 201407
  3. LISINOPRIL. [Concomitant]
     Active Substance: LISINOPRIL
  4. MULTIVIT [Concomitant]
     Active Substance: VITAMINS
  5. METFORMIN [Concomitant]
     Active Substance: METFORMIN HYDROCHLORIDE

REACTIONS (2)
  - Drug ineffective [None]
  - Prostatic specific antigen increased [None]

NARRATIVE: CASE EVENT DATE: 201407
